FAERS Safety Report 6923101-2 (Version None)
Quarter: 2010Q3

REPORT INFORMATION
  Report Type: 
  Country: None (occurrence: None)
  Receive Date: 20100813
  Receipt Date: 20100803
  Transmission Date: 20110219
  Serious: Yes (Other)
  Sender: FDA-Public Use
  Company Number: BR-PFIZER INC-2010097469

PATIENT
  Age: 63 Year
  Sex: Male

DRUGS (10)
  1. XALATAN [Suspect]
     Indication: GLAUCOMA
     Dosage: 1.5 UG, 1X/DAY (ONE DROP IN THE EYE ONCE DAILY)
     Route: 047
     Dates: end: 20060101
  2. XALATAN [Suspect]
     Dosage: UNK
     Route: 047
     Dates: start: 20060101, end: 20100701
  3. COSOPT [Suspect]
     Dosage: UNK
     Route: 047
     Dates: end: 20060101
  4. TRAVATAN [Suspect]
     Dosage: UNK
     Route: 047
     Dates: start: 20060101
  5. COMBIGAN [Suspect]
     Dosage: UNK
     Route: 047
     Dates: start: 20060101
  6. AZOPT [Concomitant]
     Dosage: UNK
     Dates: start: 20060101, end: 20100701
  7. ENALAPRIL [Concomitant]
     Indication: HYPERTENSION
     Dosage: UNK
  8. TANAKAN [Concomitant]
     Indication: CARDIOVASCULAR DISORDER
     Dosage: 80 MG, UNK
  9. TANAKAN [Concomitant]
     Indication: LABYRINTHITIS
  10. MULTIVITAMIN [Concomitant]
     Indication: PROPHYLAXIS
     Dosage: UNK

REACTIONS (5)
  - EYE DISORDER [None]
  - EYE IRRITATION [None]
  - GLUCOSE TOLERANCE IMPAIRED [None]
  - HYPERSENSITIVITY [None]
  - INTRAOCULAR PRESSURE INCREASED [None]
